FAERS Safety Report 21804726 (Version 2)
Quarter: 2023Q1

REPORT INFORMATION
  Report Type: Report from Study
  Country: US (occurrence: US)
  Receive Date: 20230102
  Receipt Date: 20230120
  Transmission Date: 20230417
  Serious: Yes (Hospitalization, Other)
  Sender: FDA-Public Use
  Company Number: US-TAKEDA-2022TUS102378

PATIENT
  Sex: Female
  Weight: 61.224 kg

DRUGS (26)
  1. HUMAN IMMUNOGLOBULIN G [Suspect]
     Active Substance: HUMAN IMMUNOGLOBULIN G
     Indication: Habitual abortion
     Dosage: 25 GRAM, 1/WEEK
     Route: 042
     Dates: start: 20221111
  2. DIPHENHYDRAMINE [Concomitant]
     Active Substance: DIPHENHYDRAMINE
  3. VITAMIN D3 [Concomitant]
     Active Substance: CHOLECALCIFEROL
  4. ONDANSETRON HCL [Concomitant]
     Active Substance: ONDANSETRON HYDROCHLORIDE
  5. VITAMIN B [Concomitant]
     Active Substance: VITAMIN B
  6. ACETAMINOPHEN [Concomitant]
     Active Substance: ACETAMINOPHEN
  7. SODIUM CHLORIDE [Concomitant]
     Active Substance: SODIUM CHLORIDE
  8. EPINEPHRINE [Concomitant]
     Active Substance: EPINEPHRINE
  9. METFORMIN [Concomitant]
     Active Substance: METFORMIN HYDROCHLORIDE
  10. NALTREXONE HYDROCHLORIDE [Concomitant]
     Active Substance: NALTREXONE HYDROCHLORIDE
  11. HYDROXYCHLOROQUINE SULFATE [Concomitant]
     Active Substance: HYDROXYCHLOROQUINE SULFATE
  12. DIPHENHYDRAMINE HYDROCHLORIDE [Concomitant]
     Active Substance: DIPHENHYDRAMINE HYDROCHLORIDE
  13. IRON [Concomitant]
     Active Substance: IRON
  14. METANX [Concomitant]
     Active Substance: LEVOMEFOLATE CALCIUM\METHYLCOBALAMIN\PYRIDOXAL PHOSPHATE ANHYDROUS
  15. DEXTROSE [Concomitant]
     Active Substance: DEXTROSE
     Route: 042
  16. PROGESTERONE [Concomitant]
     Active Substance: PROGESTERONE
  17. PREDNISONE [Concomitant]
     Active Substance: PREDNISONE
  18. LOVENOX [Concomitant]
     Active Substance: ENOXAPARIN SODIUM
  19. CALCIUM [Concomitant]
     Active Substance: CALCIUM
  20. VITAMIN E [Concomitant]
     Active Substance: .ALPHA.-TOCOPHEROL
  21. UNISOM SLEEPTABS [Concomitant]
     Active Substance: DOXYLAMINE SUCCINATE
  22. LIDOCAINE [Concomitant]
     Active Substance: LIDOCAINE
  23. FISH OIL [Concomitant]
     Active Substance: FISH OIL
  24. ESTRADIOL [Concomitant]
     Active Substance: ESTRADIOL
  25. LEVOTHYROXINE [Concomitant]
     Active Substance: LEVOTHYROXINE
  26. MAGNESIUM [Concomitant]
     Active Substance: MAGNESIUM

REACTIONS (4)
  - Post abortion haemorrhage [Unknown]
  - Abortion spontaneous [Unknown]
  - Pregnancy [Unknown]
  - Off label use [Unknown]
